FAERS Safety Report 25794774 (Version 4)
Quarter: 2025Q4

REPORT INFORMATION
  Report Type: Spontaneous
  Country: EU (occurrence: EU)
  Receive Date: 20250912
  Receipt Date: 20251030
  Transmission Date: 20260118
  Serious: Yes (Death, Other)
  Sender: JUBILANT
  Company Number: None

PATIENT

DRUGS (17)
  1. PREGABALIN [Interacting]
     Active Substance: PREGABALIN
     Indication: Product used for unknown indication
     Dosage: UNK,  UNK (DETECTED 27 MCG/G IN BLOOD )
     Route: 065
  2. PREGABALIN [Interacting]
     Active Substance: PREGABALIN
     Indication: Overdose
  3. CARBAMAZEPINE [Interacting]
     Active Substance: CARBAMAZEPINE
     Indication: Product used for unknown indication
     Dosage: UNK,  UNK (14 MCG/G IN BLOOD)
     Route: 065
  4. CARBAMAZEPINE [Interacting]
     Active Substance: CARBAMAZEPINE
     Indication: Overdose
  5. FENTANYL [Suspect]
     Active Substance: FENTANYL
     Indication: Product used for unknown indication
     Dosage: UNK,  UNK, (0.00038 MCG/G)
     Route: 045
  6. FENTANYL [Suspect]
     Active Substance: FENTANYL
     Dosage: UNK,  UNK (0.00038 MCG/G)
  7. ALPRAZOLAM [Interacting]
     Active Substance: ALPRAZOLAM
     Indication: Product used for unknown indication
     Dosage: UNK,  UNK
     Route: 065
  8. GABAPENTIN [Interacting]
     Active Substance: GABAPENTIN
     Indication: Product used for unknown indication
     Dosage: UNK,  UNK (90 MCG/G IN BLOOD)
     Route: 065
  9. BUPRENORPHINE [Interacting]
     Active Substance: BUPRENORPHINE
     Indication: Overdose
     Dosage: UNK,  UNK (0.006 MCG/G IN BLOOD)
     Route: 065
  10. TRIMEPRAZINE [Interacting]
     Active Substance: TRIMEPRAZINE
     Indication: Product used for unknown indication
     Dosage: UNK,  UNK (0.2 MCG/G)
     Route: 065
  11. DIAZEPAM [Interacting]
     Active Substance: DIAZEPAM
     Indication: Product used for unknown indication
     Dosage: UNK,  UNK (0.03 MCG/G)
     Route: 065
  12. METHYLPHENIDATE HYDROCHLORIDE [Interacting]
     Active Substance: METHYLPHENIDATE HYDROCHLORIDE
     Indication: Product used for unknown indication
     Dosage: UNK,  UNK (0.004 MCG/G)
     Route: 065
  13. ZOPICLONE [Concomitant]
     Active Substance: ZOPICLONE
     Indication: Product used for unknown indication
     Dosage: UNK,  UNK
     Route: 065
  14. CLONAZEPAM [Interacting]
     Active Substance: CLONAZEPAM
     Indication: Product used for unknown indication
     Dosage: UNK, UNK
     Route: 065
  15. MIRTAZAPINE [Interacting]
     Active Substance: MIRTAZAPINE
     Indication: Overdose
     Dosage: UNK,  UNK
     Route: 065
  16. .DELTA.8-TETRAHYDROCANNABINOL\HERBALS [Suspect]
     Active Substance: .DELTA.8-TETRAHYDROCANNABINOL\HERBALS
     Indication: Product used for unknown indication
     Dosage: UNK, UNK (0.0006 UG/G BLOOD)
  17. DRONABINOL [Suspect]
     Active Substance: DRONABINOL
     Indication: Product used for unknown indication
     Dosage: UNK, UNK
     Route: 065

REACTIONS (7)
  - Toxicity to various agents [Fatal]
  - Drug abuse [Fatal]
  - Drug interaction [Fatal]
  - Pulmonary oedema [Fatal]
  - Brain oedema [Fatal]
  - Accidental overdose [Fatal]
  - Drug tolerance [Fatal]
